FAERS Safety Report 9723258 (Version 1)
Quarter: 2013Q4

REPORT INFORMATION
  Report Type: Report from Study
  Country: CA (occurrence: CA)
  Receive Date: 20131202
  Receipt Date: 20131202
  Transmission Date: 20140711
  Serious: Yes (Other)
  Sender: FDA-Public Use
  Company Number: CA-JNJFOC-20131117117

PATIENT
  Age: 68 Year
  Sex: Female
  Weight: 73 kg

DRUGS (9)
  1. REMICADE [Suspect]
     Indication: CROHN^S DISEASE
     Route: 042
     Dates: start: 20120125
  2. AZATHIOPRINE [Concomitant]
     Route: 048
  3. VENLAFAXINE [Concomitant]
     Route: 065
  4. TECTA [Concomitant]
     Route: 065
  5. CALCIUM [Concomitant]
     Route: 065
  6. VITAMIN B12 [Concomitant]
     Route: 065
  7. BEZALIP SR [Concomitant]
     Route: 065
  8. CREON 10 [Concomitant]
     Route: 048
  9. COLESTID [Concomitant]
     Route: 048

REACTIONS (1)
  - Vertigo [Not Recovered/Not Resolved]
